FAERS Safety Report 8817509 (Version 1)
Quarter: 2012Q4

REPORT INFORMATION
  Report Type: 
  Country: GB (occurrence: GB)
  Receive Date: 20121004
  Receipt Date: 20121004
  Transmission Date: 20130627
  Serious: Yes (Other)
  Sender: FDA-Public Use
  Company Number: GB-PFIZER INC-2012243455

PATIENT
  Age: 49 Year

DRUGS (1)
  1. EFEXOR XL [Suspect]
     Dosage: 300 mg, daily

REACTIONS (1)
  - Pulmonary hypertension [Unknown]
